FAERS Safety Report 24357692 (Version 1)
Quarter: 2024Q3

REPORT INFORMATION
  Report Type: Report from Study
  Country: JP (occurrence: JP)
  Receive Date: 20240924
  Receipt Date: 20240924
  Transmission Date: 20241016
  Serious: Yes (Death)
  Sender: AKEBIA THERAPEUTICS
  Company Number: JP-MTPC-MTPC2024-0007984

PATIENT
  Age: 89 Year
  Sex: Female
  Weight: 40.9 kg

DRUGS (17)
  1. VADADUSTAT [Suspect]
     Active Substance: VADADUSTAT
     Indication: Nephrogenic anaemia
     Dosage: 300 MILLIGRAM, QD
     Route: 048
     Dates: start: 20211027
  2. SPIRONOLACTONE [Suspect]
     Active Substance: SPIRONOLACTONE
     Indication: Illness
     Dosage: 25 MILLIGRAM, QD
     Route: 048
  3. SARPOGRELATE HYDROCHLORIDE [Concomitant]
     Active Substance: SARPOGRELATE HYDROCHLORIDE
     Indication: Illness
     Dosage: 300 MILLIGRAM, QD
     Route: 048
  4. THEOPHYLLINE [Concomitant]
     Active Substance: THEOPHYLLINE
     Indication: Illness
     Dosage: 100 MILLIGRAM, QD
     Route: 048
  5. SODIUM FERROUS CITRATE [Concomitant]
     Active Substance: SODIUM FERROUS CITRATE
     Indication: Product used for unknown indication
     Dosage: 40 MILLIGRAM, QD
     Route: 048
     Dates: start: 20230314
  6. DARBEPOETIN ALFA [Concomitant]
     Active Substance: DARBEPOETIN ALFA
     Indication: Nephrogenic anaemia
     Dosage: 60 MICROGRAM, MONTHLY
     Route: 058
     Dates: end: 20210424
  7. NEXIUM [Concomitant]
     Active Substance: ESOMEPRAZOLE MAGNESIUM
     Indication: Illness
     Dosage: 20 MILLIGRAM, QD
     Route: 048
  8. FEBUXOSTAT [Concomitant]
     Active Substance: FEBUXOSTAT
     Indication: Illness
     Dosage: 20 MILLIGRAM, QD
     Route: 048
  9. AZOSEMIDE [Concomitant]
     Active Substance: AZOSEMIDE
     Indication: Illness
     Dosage: 30 MILLIGRAM, QD
     Route: 048
  10. SODIUM PICOSULFATE [Concomitant]
     Active Substance: SODIUM PICOSULFATE
     Indication: Illness
     Dosage: UNK UNK, PRN
     Route: 048
  11. TULOBUTEROL [Concomitant]
     Active Substance: TULOBUTEROL
     Indication: Illness
     Dosage: 2 MILLIGRAM, QD
     Route: 061
  12. HERBALS [Concomitant]
     Active Substance: HERBALS
     Indication: Illness
     Dosage: 7.5 GRAM, QD
     Route: 048
  13. LINZESS [Concomitant]
     Active Substance: LINACLOTIDE
     Indication: Illness
     Dosage: 0.5 MILLIGRAM, QD
     Route: 048
  14. MONTELUKAST SODIUM [Concomitant]
     Active Substance: MONTELUKAST\MONTELUKAST SODIUM
     Indication: Illness
     Dosage: 10 MILLIGRAM, QD
     Route: 048
  15. BILASTINE [Concomitant]
     Active Substance: BILASTINE
     Indication: Illness
     Dosage: 10 MILLIGRAM, QD
     Route: 048
  16. BILASTINE [Concomitant]
     Active Substance: BILASTINE
     Dosage: 20 MILLIGRAM, QD
     Route: 048
  17. BISACODYL [Concomitant]
     Active Substance: BISACODYL
     Indication: Illness
     Dosage: UNK, PRN
     Route: 054

REACTIONS (2)
  - Hyperferritinaemia [Fatal]
  - Hyperkalaemia [Fatal]

NARRATIVE: CASE EVENT DATE: 20220815
